FAERS Safety Report 8988648 (Version 1)
Quarter: 2012Q4

REPORT INFORMATION
  Report Type: Report from Study
  Country: JP (occurrence: JP)
  Receive Date: 20121227
  Receipt Date: 20121227
  Transmission Date: 20130627
  Serious: Yes (Other)
  Sender: FDA-Public Use
  Company Number: PHHY2012JP058331

PATIENT
  Age: 71 Year
  Sex: Female
  Weight: 39 kg

DRUGS (7)
  1. AFINITOR [Suspect]
     Indication: METASTATIC RENAL CELL CARCINOMA
     Dosage: 10 mg, UNK
     Dates: start: 20111102, end: 20111125
  2. RINDERON [Concomitant]
     Indication: RENAL CELL CARCINOMA
     Dosage: 2.5 mg, UNK
     Route: 048
  3. FAMOTIDINE [Concomitant]
     Indication: RENAL CELL CARCINOMA
     Dosage: 40 mg, UNK
     Route: 048
  4. ECABET MONOSODIUM [Concomitant]
     Indication: RENAL CELL CARCINOMA
     Dosage: 3 mg, UNK
     Route: 048
  5. MELOXICAM [Concomitant]
     Indication: RENAL CELL CARCINOMA
     Dosage: 20 mg, UNK
     Route: 048
  6. OXYCONTIN [Concomitant]
     Indication: RENAL CELL CARCINOMA
     Dosage: 20 mg, UNK
     Route: 048
  7. AMLODIPINE [Concomitant]
     Dosage: 5 mg, UNK
     Route: 048

REACTIONS (7)
  - Blood albumin decreased [Unknown]
  - Gamma-glutamyltransferase increased [Unknown]
  - Haemoglobin decreased [Unknown]
  - Blood alkaline phosphatase increased [Unknown]
  - Neoplasm progression [Unknown]
  - Malignant neoplasm progression [Unknown]
  - Stomatitis [Recovering/Resolving]
